FAERS Safety Report 4399937-1 (Version None)
Quarter: 2004Q3

REPORT INFORMATION
  Report Type: 
  Country: None (occurrence: None)
  Receive Date: 20040714
  Receipt Date: 20031229
  Transmission Date: 20050211
  Serious: Yes (Hospitalization)
  Sender: FDA-Public Use
  Company Number: FR_031203355

PATIENT
  Age: 1 Week

DRUGS (4)
  1. PROZAC [Suspect]
     Dosage: UNK
     Route: 065
     Dates: start: 20021115, end: 20030822
  2. ANAFRANIL [Concomitant]
  3. CHLORPROMAZINE [Concomitant]
  4. LYSANXIA (PRAZEPAM) [Concomitant]

REACTIONS (6)
  - CLONUS [None]
  - CYANOSIS NEONATAL [None]
  - DRUG EXPOSURE DURING PREGNANCY [None]
  - DRUG WITHDRAWAL SYNDROME NEONATAL [None]
  - HYPERTHERMIA [None]
  - NEONATAL TACHYCARDIA [None]
